FAERS Safety Report 21167941 (Version 1)
Quarter: 2022Q3

REPORT INFORMATION
  Report Type: Report from Study
  Country: ES (occurrence: ES)
  Receive Date: 20220803
  Receipt Date: 20220803
  Transmission Date: 20221026
  Serious: Yes (Hospitalization)
  Sender: FDA-Public Use
  Company Number: None

PATIENT
  Age: 73 Year
  Sex: Female

DRUGS (3)
  1. CIPROFLOXACIN [Suspect]
     Active Substance: CIPROFLOXACIN
     Indication: Pseudomembranous colitis
     Dosage: CIPROFLOXACINO (2049A) , UNIT DOSE : 1.5 GRAM , FREQUENCY TIME :1 DAY   , DURATION : 7 DAYS
     Dates: start: 20220607, end: 20220613
  2. OMEPRAZOLE [Suspect]
     Active Substance: OMEPRAZOLE
     Indication: Gastritis prophylaxis
     Dosage: OMEPRAZOL (2141A) ,UNIT DOSE : 20 MG , FREQUENCY TIME :  1 DAY , DURATION : 7 DAYS
     Dates: start: 20220607, end: 20220613
  3. METRONIDAZOLE [Suspect]
     Active Substance: METRONIDAZOLE
     Indication: Pseudomembranous colitis
     Dosage: METRONIDAZOL (1966A) , UNIT DOSE : 1.5 MG , FREQUENCY TIME : 1 DAY  , DURATION : 7 DAY
     Dates: start: 20220607, end: 20220613

REACTIONS (1)
  - Tubulointerstitial nephritis [Recovering/Resolving]

NARRATIVE: CASE EVENT DATE: 20220616
